FAERS Safety Report 17562309 (Version 1)
Quarter: 2020Q1

REPORT INFORMATION
  Report Type: Spontaneous
  Country: GB (occurrence: GB)
  Receive Date: 20200319
  Receipt Date: 20200319
  Transmission Date: 20200409
  Serious: Yes (Hospitalization, Other)
  Sender: FDA-Public Use
  Company Number: GB-BAUSCH-BL-2020-008053

PATIENT
  Age: 23 Year
  Sex: Female

DRUGS (1)
  1. GENTAMICIN. [Suspect]
     Active Substance: GENTAMICIN
     Indication: HEPATITIS ALCOHOLIC
     Dosage: 225 MG STAT DOSE, THEN 240 MG ONCE A DAY AFTER (EXCEPT FOR 22/08/2019)
     Route: 065
     Dates: start: 20190820, end: 20190826

REACTIONS (1)
  - Acute kidney injury [Not Recovered/Not Resolved]

NARRATIVE: CASE EVENT DATE: 20190826
